FAERS Safety Report 7151638-2 (Version None)
Quarter: 2010Q4

REPORT INFORMATION
  Report Type: 
  Country: None (occurrence: None)
  Receive Date: 20101210
  Receipt Date: 20101203
  Transmission Date: 20110411
  Serious: No
  Sender: FDA-Public Use
  Company Number: US-US-EMD SERONO, INC.-232265J09USA

PATIENT
  Sex: Female

DRUGS (8)
  1. REBIF [Suspect]
     Indication: MULTIPLE SCLEROSIS
     Route: 058
     Dates: start: 20051223
  2. CYMBALTA [Concomitant]
     Indication: DEPRESSION
     Route: 065
  3. LEXAPRO [Concomitant]
     Indication: DEPRESSION
     Route: 065
  4. VALIUM [Concomitant]
     Indication: DEPRESSION
     Route: 065
  5. PROVIGIL [Concomitant]
     Indication: FATIGUE
     Route: 065
  6. MAXALT [Concomitant]
     Indication: MIGRAINE
     Route: 065
  7. FROVA [Concomitant]
     Indication: MIGRAINE
     Route: 065
  8. RELPAX [Concomitant]
     Indication: MIGRAINE
     Route: 065

REACTIONS (1)
  - NO ADVERSE EVENT [None]
